FAERS Safety Report 6978771-X (Version None)
Quarter: 2010Q3

REPORT INFORMATION
  Report Type: 
  Country: None (occurrence: None)
  Receive Date: 20100913
  Receipt Date: 20100903
  Transmission Date: 20110219
  Serious: Yes (Other)
  Sender: FDA-Public Use
  Company Number: DE-ASTRAZENECA-2010SE33854

PATIENT
  Sex: Male

DRUGS (7)
  1. NEXIUM [Suspect]
     Indication: BARRETT'S OESOPHAGUS
     Route: 048
     Dates: start: 20000101
  2. NEXIUM [Suspect]
     Indication: GASTROOESOPHAGEAL REFLUX DISEASE
     Route: 048
     Dates: start: 20000101
  3. NEXIUM [Suspect]
     Route: 048
  4. NEXIUM [Suspect]
     Route: 048
  5. ANTRA [Suspect]
     Indication: BARRETT'S OESOPHAGUS
     Route: 048
     Dates: start: 19900101, end: 20000101
  6. ANTRA [Suspect]
     Indication: GASTROOESOPHAGEAL REFLUX DISEASE
     Route: 048
     Dates: start: 19900101, end: 20000101
  7. PROTON PUMP INHIBITOR [Concomitant]
     Dates: start: 19800101

REACTIONS (1)
  - FRACTURED SACRUM [None]
